FAERS Safety Report 16671146 (Version 2)
Quarter: 2019Q3

REPORT INFORMATION
  Report Type: Spontaneous
  Country: US (occurrence: US)
  Receive Date: 20190805
  Receipt Date: 20190911
  Transmission Date: 20191004
  Serious: No
  Sender: FDA-Public Use
  Company Number: US-INCYTE CORPORATION-2019IN007649

PATIENT

DRUGS (4)
  1. JAKAFI [Suspect]
     Active Substance: RUXOLITINIB
     Dosage: 10 MILLIGRAM, QD
     Route: 048
     Dates: start: 20150102
  2. JAKAFI [Suspect]
     Active Substance: RUXOLITINIB
     Dosage: 10 MILLIGRAM, QD
     Route: 048
     Dates: start: 20150102
  3. JAKAFI [Suspect]
     Active Substance: RUXOLITINIB
     Dosage: FROM 1 PILL A DAY TO 2 PILLS A DAY
     Route: 065
  4. JAKAFI [Suspect]
     Active Substance: RUXOLITINIB
     Dosage: UNK UNK, BID
     Route: 065

REACTIONS (4)
  - Gastrointestinal disorder [Unknown]
  - Splenomegaly [Unknown]
  - Bone pain [Unknown]
  - Abdominal pain upper [Unknown]
